FAERS Safety Report 24602105 (Version 1)
Quarter: 2024Q4

REPORT INFORMATION
  Report Type: Spontaneous
  Country: CH (occurrence: CH)
  Receive Date: 20241111
  Receipt Date: 20241111
  Transmission Date: 20250115
  Serious: Yes (Hospitalization, Other)
  Sender: EPIC PHARM
  Company Number: CH-EPICPHARMA-CH-2024EPCLIT01397

PATIENT
  Age: 29 Year
  Sex: Female

DRUGS (9)
  1. TRANEXAMIC ACID [Suspect]
     Active Substance: TRANEXAMIC ACID
     Indication: Postpartum haemorrhage
     Route: 042
  2. MISOPROSTOL [Suspect]
     Active Substance: MISOPROSTOL
     Indication: Uterine contractions abnormal
     Route: 065
  3. CARBETOCIN [Suspect]
     Active Substance: CARBETOCIN
     Indication: Postpartum haemorrhage
     Route: 042
  4. FIBRINOGEN [Suspect]
     Active Substance: FIBRINOGEN HUMAN
     Indication: Postpartum haemorrhage
     Route: 065
  5. CALCIUM CHLORIDE\DEXTROSE\POTASSIUM CHLORIDE\SODIUM LACTATE [Suspect]
     Active Substance: CALCIUM CHLORIDE\DEXTROSE\POTASSIUM CHLORIDE\SODIUM LACTATE
     Indication: Postpartum haemorrhage
     Route: 065
  6. HETASTARCH\SODIUM CHLORIDE [Suspect]
     Active Substance: HETASTARCH\SODIUM CHLORIDE
     Indication: Postpartum haemorrhage
     Route: 065
  7. CALCIUM [Suspect]
     Active Substance: CALCIUM
     Indication: Postpartum haemorrhage
     Route: 065
  8. CEFUROXIME [Suspect]
     Active Substance: CEFUROXIME
     Indication: Antibiotic prophylaxis
     Route: 065
  9. NOREPINEPHRINE [Suspect]
     Active Substance: NOREPINEPHRINE\NOREPINEPHRINE BITARTRATE
     Indication: Haemodynamic instability
     Dosage: 0.15 UG/KG/MIN
     Route: 065

REACTIONS (2)
  - Acute kidney injury [Recovering/Resolving]
  - Drug ineffective for unapproved indication [Unknown]
